FAERS Safety Report 15815505 (Version 1)
Quarter: 2019Q1

REPORT INFORMATION
  Report Type: Spontaneous
  Country: GB (occurrence: GB)
  Receive Date: 20190112
  Receipt Date: 20190112
  Transmission Date: 20190417
  Serious: Yes (Other)
  Sender: FDA-Public Use
  Company Number: PHHY2019GB002400

PATIENT
  Age: 20 Year
  Sex: Male

DRUGS (5)
  1. THYMOGLOBULIN [Suspect]
     Active Substance: LAPINE T-LYMPHOCYTE IMMUNE GLOBULIN
     Dosage: 2 MG/KG, UNK (DAY 8, 7)
     Route: 065
  2. FLUDARABINE [Suspect]
     Active Substance: FLUDARABINE PHOSPHATE
     Indication: STEM CELL TRANSPLANT
     Dosage: 30 MG/KG, UNK (DAYS 6, 2)
     Route: 065
  3. THIOTEPA. [Suspect]
     Active Substance: THIOTEPA
     Indication: STEM CELL TRANSPLANT
     Dosage: 10 MG/KG, UNK (DAILY ON DAY 7)
     Route: 065
  4. CYCLOPHOSPHAMIDE. [Suspect]
     Active Substance: CYCLOPHOSPHAMIDE
     Indication: STEM CELL TRANSPLANT
     Dosage: 14.5 MG/KG, UNK (DAYS 6, 5)
     Route: 065
  5. THYMOGLOBULIN [Suspect]
     Active Substance: LAPINE T-LYMPHOCYTE IMMUNE GLOBULIN
     Indication: STEM CELL TRANSPLANT
     Dosage: 0.5 MG/KG, UNK (DAY 9)
     Route: 065

REACTIONS (4)
  - Cystitis viral [Unknown]
  - Duodenal ulcer haemorrhage [Recovered/Resolved]
  - Epstein-Barr virus infection [Unknown]
  - Chronic graft versus host disease in intestine [Unknown]
